FAERS Safety Report 10733021 (Version 7)
Quarter: 2015Q2

REPORT INFORMATION
  Report Type: Spontaneous
  Country: US (occurrence: US)
  Receive Date: 20150123
  Receipt Date: 20150406
  Transmission Date: 20150821
  Serious: Yes (Death, Hospitalization)
  Sender: FDA-Public Use
  Company Number: US-ACTELION-A-US2015-111415

PATIENT
  Age: 75 Year
  Sex: Female

DRUGS (4)
  1. FLOLAN [Concomitant]
     Active Substance: EPOPROSTENOL SODIUM
  2. TRACLEER [Suspect]
     Active Substance: BOSENTAN\BOSENTAN MONOHYDRATE
     Indication: PULMONARY ARTERIAL HYPERTENSION
     Dosage: UNK
     Route: 048
     Dates: end: 20150319
  3. SILDENAFIL. [Concomitant]
     Active Substance: SILDENAFIL
  4. COUMADIN [Concomitant]
     Active Substance: WARFARIN SODIUM

REACTIONS (12)
  - Acute pulmonary oedema [Unknown]
  - Pulmonary arterial hypertension [Unknown]
  - Condition aggravated [Unknown]
  - Abdominal pain [Unknown]
  - Oedema [Unknown]
  - Pneumonia [Unknown]
  - Asthenia [Unknown]
  - Dyspnoea [Unknown]
  - Respiratory failure [Fatal]
  - Central venous catheterisation [Unknown]
  - Malaise [Unknown]
  - Cardio-respiratory arrest [Unknown]

NARRATIVE: CASE EVENT DATE: 20150319
